FAERS Safety Report 17886578 (Version 3)
Quarter: 2021Q2

REPORT INFORMATION
  Report Type: Spontaneous
  Country: US (occurrence: US)
  Receive Date: 20200611
  Receipt Date: 20210510
  Transmission Date: 20210717
  Serious: Yes (Hospitalization, Other)
  Sender: FDA-Public Use
  Company Number: US-BAUSCH-BL-2020-016148

PATIENT
  Age: 85 Year
  Sex: Female

DRUGS (2)
  1. LATANOPROST OPHTHALMIC SOLUTION 0.005% [Suspect]
     Active Substance: LATANOPROST
     Indication: MACULAR DEGENERATION
     Route: 047
  2. LATANOPROST OPHTHALMIC SOLUTION 0.005% [Suspect]
     Active Substance: LATANOPROST
     Indication: GLAUCOMA
     Dosage: START DATE: ABOUT 2 YEARS AGO, 1 DROP IN EACH EYE
     Route: 047
     Dates: start: 2018

REACTIONS (9)
  - Cardiac disorder [Unknown]
  - Excessive eye blinking [Unknown]
  - Intraocular pressure test abnormal [Unknown]
  - Iris hyperpigmentation [Unknown]
  - Eructation [Unknown]
  - Product container issue [Unknown]
  - Therapeutic product effect incomplete [Unknown]
  - Visual impairment [Unknown]
  - Product dose omission issue [Unknown]

NARRATIVE: CASE EVENT DATE: 2018
